FAERS Safety Report 21370645 (Version 2)
Quarter: 2022Q4

REPORT INFORMATION
  Report Type: Spontaneous
  Country: FR (occurrence: FR)
  Receive Date: 20220923
  Receipt Date: 20221111
  Transmission Date: 20230113
  Serious: Yes (Death, Other)
  Sender: FDA-Public Use
  Company Number: None

PATIENT

DRUGS (19)
  1. CANNABIDIOL [Suspect]
     Active Substance: CANNABIDIOL
     Indication: Epilepsy
     Dosage: 600 MILLIGRAM
     Route: 048
     Dates: start: 20220515
  2. CANNABIDIOL [Suspect]
     Active Substance: CANNABIDIOL
     Dosage: 50 MILLIGRAM, QD IN THE EVENING FOR 1 WEEK
     Dates: start: 20220515
  3. CANNABIDIOL [Suspect]
     Active Substance: CANNABIDIOL
     Dosage: 50 MILLIGRAM, BID IN THE MORNING AND EVENINIG FOR 1 WEEK
  4. CANNABIDIOL [Suspect]
     Active Substance: CANNABIDIOL
     Dosage: 50 MG IN THE MORNING, 100 MG IN THE EVENING FOR 1 WEEK
  5. CANNABIDIOL [Suspect]
     Active Substance: CANNABIDIOL
     Dosage: 100 MILLIGRAM, BID IN THE MORNING AND EVENINIG FOR 1 WEEK
  6. CANNABIDIOL [Suspect]
     Active Substance: CANNABIDIOL
     Dosage: 100 MG IN THE MORNING, 150 MG IN THE EVENING FOR 1 WEEK
  7. CANNABIDIOL [Suspect]
     Active Substance: CANNABIDIOL
     Dosage: 150 MILLIGRAM, BID IN THE MORNING AND EVENINIG FOR 1 WEEK
  8. CANNABIDIOL [Suspect]
     Active Substance: CANNABIDIOL
     Dosage: 150 MG IN THE MORNING, 200 MG IN THE EVENING FOR 1 WEEK
  9. CANNABIDIOL [Suspect]
     Active Substance: CANNABIDIOL
     Dosage: 200 MILLIGRAM, BID IN THE MORNING AND EVENINIG FOR 1 WEEK
     Dates: end: 20220717
  10. CANNABIDIOL [Suspect]
     Active Substance: CANNABIDIOL
     Dosage: 200 MG IN THE MORNING, 250 MG IN THE EVENING
     Dates: start: 20220718, end: 20220724
  11. CANNABIDIOL [Suspect]
     Active Substance: CANNABIDIOL
     Dosage: 250 MILLIGRAM, BID IN THE MORNING AND EVENINIG FOR 1 WEEK
     Dates: start: 20220725, end: 20220731
  12. CANNABIDIOL [Suspect]
     Active Substance: CANNABIDIOL
     Dosage: 250 MG IN THE MORNING, 300 MG IN THE EVENING
     Dates: start: 20220801, end: 20220807
  13. CANNABIDIOL [Suspect]
     Active Substance: CANNABIDIOL
     Dosage: 300 MILLIGRAM, BID IN THE MORNING AND EVENINIG FOR 1 WEEK
     Dates: start: 20220808
  14. MIRTAZAPINE [Concomitant]
     Active Substance: MIRTAZAPINE
     Indication: Product used for unknown indication
     Dosage: 2 DOSAGE FORM, BID
  15. VENLAFAXINE [Concomitant]
     Active Substance: VENLAFAXINE HYDROCHLORIDE
     Indication: Product used for unknown indication
     Dosage: 2 DOSAGE FORM, BID
  16. FYCOMPA [Concomitant]
     Active Substance: PERAMPANEL
     Indication: Product used for unknown indication
     Dosage: 1 DOSAGE FORM, QD
  17. VIMPAT [Concomitant]
     Active Substance: LACOSAMIDE
     Indication: Product used for unknown indication
     Dosage: 2 DOSAGE FORM, BID
  18. CLOBAZAM [Concomitant]
     Active Substance: CLOBAZAM
     Indication: Product used for unknown indication
     Dosage: 1 DOSAGE FORM, QD
  19. ESLICARBAZEPINE ACETATE [Concomitant]
     Active Substance: ESLICARBAZEPINE ACETATE
     Dosage: 1 DOSAGE FORM, QD

REACTIONS (3)
  - Sudden death [Fatal]
  - Epilepsy [Unknown]
  - Disorientation [Unknown]

NARRATIVE: CASE EVENT DATE: 20220627
